FAERS Safety Report 8834460 (Version 1)
Quarter: 2012Q4

REPORT INFORMATION
  Report Type: 
  Country: IL (occurrence: IL)
  Receive Date: 20121010
  Receipt Date: 20121010
  Transmission Date: 20130627
  Serious: Yes (Death)
  Sender: FDA-Public Use
  Company Number: PHHY2012IL089357

PATIENT
  Sex: Female

DRUGS (2)
  1. ACLASTA [Suspect]
     Indication: OSTEOPOROSIS
     Dosage: 5 mg/100ml
     Route: 042
     Dates: start: 20101115
  2. ACLASTA [Suspect]
     Dosage: 5 mg/100ml
     Route: 042
     Dates: start: 20111113

REACTIONS (1)
  - Death [Fatal]
